FAERS Safety Report 5720527-X (Version None)
Quarter: 2008Q2

REPORT INFORMATION
  Report Type: 
  Country: None (occurrence: None)
  Receive Date: 20080423
  Receipt Date: 20070730
  Transmission Date: 20081010
  Serious: Yes (Disabling)
  Sender: FDA-Public Use
  Company Number: WAES 0707USA05070

PATIENT
  Age: 8 Year
  Sex: Female

DRUGS (6)
  1. SINGULAIR [Suspect]
     Indication: ASTHMA
     Dosage: 5 MG/DAILY/PO
     Route: 048
     Dates: start: 20050101, end: 20070601
  2. INHL ADVAIR 2 PUFF [Suspect]
     Indication: ASTHMA
     Dosage: 2 PUFF/BID/INH
     Route: 055
     Dates: start: 20070101
  3. INTAL [Concomitant]
  4. SPIRIVA [Concomitant]
  5. ZYRTEC [Concomitant]
  6. ALBUTEROL [Concomitant]

REACTIONS (2)
  - HEADACHE [None]
  - VOMITING [None]
